FAERS Safety Report 20531304 (Version 1)
Quarter: 2022Q1

REPORT INFORMATION
  Report Type: Report from Study
  Country: NL (occurrence: NL)
  Receive Date: 20220301
  Receipt Date: 20220301
  Transmission Date: 20220424
  Serious: Yes (Hospitalization, Other)
  Sender: FDA-Public Use
  Company Number: NL-RECORDATI-2022000644

PATIENT

DRUGS (3)
  1. SIGNIFOR LAR [Suspect]
     Active Substance: PASIREOTIDE PAMOATE
     Indication: Acromegaly
     Dosage: 60 MILLIGRAM, EVERY 3 WEEKS
     Route: 030
     Dates: start: 20151013
  2. SIGNIFOR LAR [Suspect]
     Active Substance: PASIREOTIDE PAMOATE
     Dosage: 60 MILLIGRAM, EVERY 3 WEEKS
     Route: 030
     Dates: start: 20220124
  3. SIGNIFOR LAR [Suspect]
     Active Substance: PASIREOTIDE PAMOATE
     Dosage: 60 MILLIGRAM, EVERY 3 WEEKS
     Route: 030
     Dates: start: 20220216

REACTIONS (5)
  - Renal failure [Recovered/Resolved]
  - Dehydration [Recovered/Resolved]
  - Vomiting [Recovering/Resolving]
  - Headache [Recovered/Resolved]
  - Off label use [Recovered/Resolved]

NARRATIVE: CASE EVENT DATE: 20151013
